FAERS Safety Report 8855420 (Version 1)
Quarter: 2012Q4

REPORT INFORMATION
  Report Type: 
  Country: US (occurrence: US)
  Receive Date: 20121023
  Receipt Date: 20121023
  Transmission Date: 20130627
  Serious: No
  Sender: FDA-Public Use
  Company Number: US-AMGEN-USASP2012053732

PATIENT
  Age: 70 Year
  Sex: Female
  Weight: 58.05 kg

DRUGS (8)
  1. ENBREL [Suspect]
     Indication: PRODUCT USED FOR UNKNOWN INDICATION
     Dosage: 25 mg, 2 times/wk
     Route: 058
     Dates: start: 20100728
  2. METHOTREXATE [Concomitant]
     Dosage: 2.5 mg, UNK
  3. VIVELLE                            /00045401/ [Concomitant]
     Dosage: 0.1 mg, UNK
  4. LISINOPRIL [Concomitant]
     Dosage: 10 mg, UNK
  5. FOLIC ACID [Concomitant]
     Dosage: 1 mg, UNK
  6. LEVOTHYROXIN [Concomitant]
     Dosage: 112 mug, UNK
  7. ASPIRIN LOW [Concomitant]
     Dosage: 81 mg, UNK
  8. OMEGA 3                            /01334101/ [Concomitant]
     Dosage: 1000 mg, UNK

REACTIONS (3)
  - Injection site haematoma [Unknown]
  - Sinusitis [Unknown]
  - Osteoarthritis [Unknown]
